FAERS Safety Report 19828243 (Version 1)
Quarter: 2021Q3

REPORT INFORMATION
  Report Type: Report from Study
  Country: US (occurrence: US)
  Receive Date: 20210914
  Receipt Date: 20210914
  Transmission Date: 20211014
  Serious: Yes (Hospitalization, Disabling, Other)
  Sender: FDA-Public Use
  Company Number: US-JNJFOC-A-US2013-82151

PATIENT
  Age: 59 Year
  Sex: Female

DRUGS (9)
  1. TRACLEER [Suspect]
     Active Substance: BOSENTAN
     Indication: PULMONARY ARTERIAL HYPERTENSION
     Dosage: 125 MG, BID
     Route: 048
     Dates: start: 20120116
  2. TRACLEER [Suspect]
     Active Substance: BOSENTAN
     Dosage: 125 MG, BID
     Route: 048
  3. URIBEL [Suspect]
     Active Substance: HYOSCYAMINE SULFATE\METHENAMINE\METHYLENE BLUE\PHENYL SALICYLATE\SODIUM PHOSPHATE, MONOBASIC, MONOHYDRATE
     Indication: PRODUCT USED FOR UNKNOWN INDICATION
     Route: 065
  4. SILDENAFIL. [Concomitant]
     Active Substance: SILDENAFIL
  5. TRACLEER [Suspect]
     Active Substance: BOSENTAN
     Dosage: 125 MG, BID
     Route: 048
  6. ELIQUIS [Concomitant]
     Active Substance: APIXABAN
  7. RANEXA [Concomitant]
     Active Substance: RANOLAZINE
  8. NORVASC [Concomitant]
     Active Substance: AMLODIPINE BESYLATE
  9. COVID?19 VACCINE NOS. [Suspect]
     Active Substance: COVID-19 VACCINE NOS
     Indication: PROPHYLAXIS
     Route: 065

REACTIONS (38)
  - Breast operation [Unknown]
  - Breast reconstruction [Unknown]
  - Atrial fibrillation [Unknown]
  - Neoplasm malignant [Unknown]
  - Cystitis interstitial [Unknown]
  - Right ventricular failure [Not Recovered/Not Resolved]
  - Fall [Recovered/Resolved]
  - Heart transplant [Unknown]
  - Syncope [Unknown]
  - Mastectomy [Unknown]
  - Burning sensation [Unknown]
  - Breast cancer [Unknown]
  - Hypersensitivity [Unknown]
  - Bladder disorder [Unknown]
  - Fluid retention [Unknown]
  - Blood pressure increased [Recovering/Resolving]
  - Renal disorder [Unknown]
  - Chest pain [Recovered/Resolved]
  - Dyspnoea [Unknown]
  - Oedema [Unknown]
  - Rash [Recovered/Resolved]
  - Drug hypersensitivity [Unknown]
  - Anaemia [Unknown]
  - Rash pruritic [Unknown]
  - Stress [Unknown]
  - Transient ischaemic attack [Recovering/Resolving]
  - Dyspnoea exertional [Unknown]
  - Cardiac ablation [Unknown]
  - Oedema peripheral [Unknown]
  - Surgery [Unknown]
  - Blood urine present [Unknown]
  - Swelling face [Unknown]
  - Vomiting [Unknown]
  - Large intestinal polypectomy [Unknown]
  - Painful respiration [Unknown]
  - Foot fracture [Recovered/Resolved]
  - Weight increased [Unknown]
  - Urinary tract infection [Recovering/Resolving]

NARRATIVE: CASE EVENT DATE: 201802
